FAERS Safety Report 23319152 (Version 2)
Quarter: 2023Q4

REPORT INFORMATION
  Report Type: Spontaneous
  Country: US (occurrence: US)
  Receive Date: 20231220
  Receipt Date: 20231222
  Transmission Date: 20240110
  Serious: Yes (Hospitalization, Other)
  Sender: FDA-Public Use
  Company Number: US-ABBVIE-5542316

PATIENT
  Sex: Female

DRUGS (1)
  1. RINVOQ [Suspect]
     Active Substance: UPADACITINIB
     Indication: Ankylosing spondylitis
     Route: 048

REACTIONS (6)
  - Migraine [Unknown]
  - Arthritis [Unknown]
  - Paraesthesia [Unknown]
  - Hypoacusis [Unknown]
  - Post-traumatic neck syndrome [Unknown]
  - Dysphonia [Unknown]
